FAERS Safety Report 15593952 (Version 4)
Quarter: 2018Q4

REPORT INFORMATION
  Report Type: Spontaneous
  Country: US (occurrence: US)
  Receive Date: 20181106
  Receipt Date: 20181108
  Transmission Date: 20190205
  Serious: Yes (Other)
  Sender: FDA-Public Use
  Company Number: US-GILEAD-2018-0372756

PATIENT
  Age: 74 Year
  Sex: Female

DRUGS (1)
  1. RANEXA [Suspect]
     Active Substance: RANOLAZINE
     Indication: ANGINA PECTORIS
     Dosage: UNK, BID
     Route: 048
     Dates: start: 201808, end: 20181019

REACTIONS (5)
  - Myocardial infarction [Unknown]
  - Stent placement [Unknown]
  - Amnesia [Unknown]
  - Chest pain [Unknown]
  - Intentional dose omission [Unknown]

NARRATIVE: CASE EVENT DATE: 201810
